FAERS Safety Report 6698502-0 (Version None)
Quarter: 2010Q2

REPORT INFORMATION
  Report Type: 
  Country: None (occurrence: None)
  Receive Date: 20100426
  Receipt Date: 20100426
  Transmission Date: 20101027
  Serious: Yes (Hospitalization)
  Sender: FDA-Public Use
  Company Number: None

PATIENT
  Age: 1 Year
  Sex: Male

DRUGS (1)
  1. AMOXICILLIN [Suspect]
     Indication: OTITIS MEDIA
     Dosage: 5ML BID PO
     Route: 048

REACTIONS (4)
  - FACE OEDEMA [None]
  - RASH GENERALISED [None]
  - TYPE IV HYPERSENSITIVITY REACTION [None]
  - VIRAL INFECTION [None]
